FAERS Safety Report 5682336-X (Version None)
Quarter: 2008Q1

REPORT INFORMATION
  Report Type: 
  Country: None (occurrence: None)
  Receive Date: 20080327
  Receipt Date: 20080325
  Transmission Date: 20080703
  Serious: Yes (Other)
  Sender: FDA-Public Use
  Company Number: US-ASTRAZENECA-2008UW04337

PATIENT
  Age: 33368 Day
  Sex: Female
  Weight: 85.9 kg

DRUGS (2)
  1. ARIMIDEX [Suspect]
     Indication: BREAST CANCER
     Route: 048
     Dates: start: 20080115, end: 20080120
  2. FASLODEX [Concomitant]
     Route: 030

REACTIONS (3)
  - PRURITUS [None]
  - RASH [None]
  - SWOLLEN TONGUE [None]
